FAERS Safety Report 6566679-3 (Version None)
Quarter: 2010Q1

REPORT INFORMATION
  Report Type: 
  Country: None (occurrence: None)
  Receive Date: 20100202
  Receipt Date: 20100126
  Transmission Date: 20100710
  Serious: Yes (Death)
  Sender: FDA-Public Use
  Company Number: US-ROCHE-681885

PATIENT
  Sex: Male

DRUGS (1)
  1. XELODA [Suspect]
     Dosage: DOSE: 04 TABLETS OF 500 MG DAILY
     Route: 048
     Dates: start: 20090312

REACTIONS (1)
  - DEATH [None]
